FAERS Safety Report 7618271-7 (Version None)
Quarter: 2011Q3

REPORT INFORMATION
  Report Type: 
  Country: None (occurrence: None)
  Receive Date: 20110718
  Receipt Date: 20110711
  Transmission Date: 20111222
  Serious: No
  Sender: FDA-Public Use
  Company Number: US-ROXANE LABORATORIES, INC.-2011-RO-00993RO

PATIENT
  Sex: Female

DRUGS (7)
  1. FLECAINIDE ACETATE [Suspect]
     Dosage: 50 MG
     Route: 048
     Dates: start: 20110706
  2. FERROUS SULFATE TAB [Concomitant]
  3. FLECAINIDE ACETATE [Suspect]
     Indication: ATRIAL FIBRILLATION
     Dosage: 100 MG
     Route: 048
     Dates: end: 20110706
  4. ATENOLOL [Concomitant]
     Dosage: 25 MG
  5. MULTI-VITAMIN [Concomitant]
  6. LISINOPRIL [Concomitant]
  7. SYNTHROID [Concomitant]
     Dosage: 75 MCG

REACTIONS (4)
  - DYSPNOEA [None]
  - RESPIRATORY RATE DECREASED [None]
  - HYPOPNOEA [None]
  - DIZZINESS [None]
